FAERS Safety Report 21109554 (Version 2)
Quarter: 2022Q3

REPORT INFORMATION
  Report Type: Report from Study
  Country: FR (occurrence: None)
  Receive Date: 20220721
  Receipt Date: 20220921
  Transmission Date: 20221027
  Serious: Yes (Hospitalization)
  Sender: FDA-Public Use
  Company Number: FR-ROCHE-3044591

PATIENT
  Age: 71 Year
  Sex: Female
  Weight: 44 kg

DRUGS (5)
  1. ATEZOLIZUMAB [Suspect]
     Active Substance: ATEZOLIZUMAB
     Indication: Neoplasm
     Dosage: CUMULATIVE DOSE SINCE 1ST ADMINISTRATION IS 3600 MG
     Route: 042
     Dates: start: 20220114, end: 20220225
  2. KETOPROFEN [Concomitant]
     Active Substance: KETOPROFEN
     Indication: Pain
     Route: 048
     Dates: start: 20220207
  3. OXYCONTIN [Concomitant]
     Active Substance: OXYCODONE HYDROCHLORIDE
     Indication: Pain
     Route: 048
     Dates: start: 20220205
  4. OXYCODONE HYDROCHLORIDE [Concomitant]
     Active Substance: OXYCODONE HYDROCHLORIDE
     Indication: Pain
     Route: 048
     Dates: start: 20211216
  5. LANTUS [Concomitant]
     Active Substance: INSULIN GLARGINE
     Indication: Diabetes mellitus

REACTIONS (3)
  - Proctalgia [Not Recovered/Not Resolved]
  - Perineal pain [Not Recovered/Not Resolved]
  - Confusional state [Unknown]

NARRATIVE: CASE EVENT DATE: 20220304
